FAERS Safety Report 10312029 (Version 1)
Quarter: 2014Q3

REPORT INFORMATION
  Report Type: Spontaneous
  Country: FR (occurrence: None)
  Receive Date: 20140715
  Receipt Date: 20140715
  Transmission Date: 20150326
  Serious: Yes (Hospitalization, Other)
  Sender: FDA-Public Use
  Company Number: 2014MPI00818

PATIENT
  Age: 37 Year
  Sex: Female

DRUGS (1)
  1. ADCETRIS [Suspect]
     Active Substance: BRENTUXIMAB VEDOTIN
     Indication: T-CELL LYMPHOMA REFRACTORY
     Route: 042
     Dates: start: 20140226

REACTIONS (8)
  - Colitis [None]
  - Weight decreased [None]
  - Leukopenia [None]
  - Oral candidiasis [None]
  - Decreased appetite [None]
  - Aplasia pure red cell [None]
  - Thrombocytopenia [None]
  - Staphylococcus test positive [None]

NARRATIVE: CASE EVENT DATE: 20140328
